FAERS Safety Report 13652138 (Version 1)
Quarter: 2017Q2

REPORT INFORMATION
  Report Type: Spontaneous
  Country: US (occurrence: US)
  Receive Date: 20170614
  Receipt Date: 20170614
  Transmission Date: 20170830
  Serious: Yes (Death)
  Sender: FDA-Public Use
  Company Number: None

PATIENT
  Age: 57 Year
  Sex: Male

DRUGS (14)
  1. CARBAMAZEPINE. [Concomitant]
     Active Substance: CARBAMAZEPINE
  2. LEVEMIR [Concomitant]
     Active Substance: INSULIN DETEMIR
  3. LONSURF [Suspect]
     Active Substance: TIPIRACIL HYDROCHLORIDE\TRIFLURIDINE
     Indication: COLON CANCER
     Dosage: 3 TABS (60MG) BID DAYS 1-5 + 8-12 OF EACH 28 DAY CYCLE ORALLY
     Route: 048
     Dates: start: 20170421, end: 20170510
  4. PROCHLORPERAZINE. [Concomitant]
     Active Substance: PROCHLORPERAZINE
  5. ONDANSETRON [Concomitant]
     Active Substance: ONDANSETRON
  6. MORPHINE [Concomitant]
     Active Substance: MORPHINE
  7. OXYBUTYNIN [Concomitant]
     Active Substance: OXYBUTYNIN
  8. LORAZEPAM. [Concomitant]
     Active Substance: LORAZEPAM
  9. IBUPROFEN. [Concomitant]
     Active Substance: IBUPROFEN
  10. GLUCAGON. [Concomitant]
     Active Substance: GLUCAGON
  11. HYOSCYAMINE. [Concomitant]
     Active Substance: HYOSCYAMINE
  12. HYDROCODONE BITARTRATE AND ACETAMINOPHEN [Concomitant]
     Active Substance: ACETAMINOPHEN\HYDROCODONE BITARTRATE
  13. NOVOLOG [Concomitant]
     Active Substance: INSULIN ASPART
  14. TRESIBA [Concomitant]
     Active Substance: INSULIN DEGLUDEC

REACTIONS (1)
  - Death [None]

NARRATIVE: CASE EVENT DATE: 20170510
